FAERS Safety Report 20451796 (Version 4)
Quarter: 2022Q3

REPORT INFORMATION
  Report Type: Report from Study
  Country: US (occurrence: US)
  Receive Date: 20220209
  Receipt Date: 20220912
  Transmission Date: 20221027
  Serious: No
  Sender: FDA-Public Use
  Company Number: US-NOVARTISTESTPH-NVSC2022US028425

PATIENT
  Sex: Female

DRUGS (2)
  1. COSENTYX [Suspect]
     Active Substance: SECUKINUMAB
     Indication: Psoriatic arthropathy
     Dosage: 150 MG, Q4W
     Route: 058
  2. COSENTYX [Suspect]
     Active Substance: SECUKINUMAB
     Dosage: 300 MG EVERY 4 WEEKS
     Route: 058

REACTIONS (9)
  - Immune system disorder [Unknown]
  - Candida infection [Unknown]
  - Aphthous ulcer [Unknown]
  - Eye colour change [Unknown]
  - Back pain [Unknown]
  - Arthralgia [Unknown]
  - Pain in extremity [Unknown]
  - Peripheral swelling [Unknown]
  - Drug ineffective [Unknown]
